FAERS Safety Report 9596042 (Version 3)
Quarter: 2013Q4

REPORT INFORMATION
  Report Type: Spontaneous
  Country: US (occurrence: US)
  Receive Date: 20131004
  Receipt Date: 20131023
  Transmission Date: 20140711
  Serious: No
  Sender: FDA-Public Use
  Company Number: US-PFIZER INC-2013281829

PATIENT
  Age: 73 Year
  Sex: Female
  Weight: 76.19 kg

DRUGS (3)
  1. MOTRIN [Suspect]
     Indication: ARTHRALGIA
     Dosage: UNK
     Route: 048
  2. TYLENOL EXTRA-STRENGTH [Suspect]
     Indication: ARTHRALGIA
     Dosage: 2 CAPLETS, 4 TIMES A DAY
     Route: 048
     Dates: start: 20130829, end: 20130905
  3. TYLENOL ARTHRITIS [Suspect]
     Indication: ARTHRALGIA
     Dosage: UNK
     Route: 048

REACTIONS (1)
  - Drug ineffective [Unknown]
